FAERS Safety Report 5837539-8 (Version None)
Quarter: 2008Q3

REPORT INFORMATION
  Report Type: 
  Country: None (occurrence: None)
  Receive Date: 20080807
  Receipt Date: 20080729
  Transmission Date: 20090109
  Serious: Yes (Other)
  Sender: FDA-Public Use
  Company Number: US-ELI_LILLY_AND_COMPANY-US200807003765

PATIENT
  Sex: Male

DRUGS (11)
  1. CYMBALTA [Suspect]
     Indication: DEPRESSION
     Dosage: 60 MG, UNK
     Dates: start: 20070720
  2. TRAZODONE HCL [Concomitant]
     Dosage: 12.5 MG, UNK
  3. EZETIMIBE [Concomitant]
     Dosage: 10 MG, UNK
  4. SIMVASTATIN [Concomitant]
     Dosage: 80 MG, UNK
  5. PRESERVISION LUTEIN EYE VITA.+MIN.SUP.SOFTG. [Concomitant]
  6. LISINOPRIL [Concomitant]
     Dosage: 5 MG, 2/D
  7. AMLODIPINE BESYLATE [Concomitant]
     Dosage: 2.5 MG, DAILY (1/D)
  8. OMEPRAZOLE [Concomitant]
     Dosage: 20 MG, UNK
  9. EPHEDRIN [Concomitant]
     Dosage: 325 MG, DAILY (1/D)
  10. METOPROLOL TARTRATE [Concomitant]
     Dosage: 50 MG, DAILY (1/D)
  11. FISH OIL [Concomitant]

REACTIONS (3)
  - FATIGUE [None]
  - HYPERKERATOSIS [None]
  - MACULAR DEGENERATION [None]
